FAERS Safety Report 24222562 (Version 2)
Quarter: 2024Q3

REPORT INFORMATION
  Report Type: Spontaneous
  Country: GB (occurrence: GB)
  Receive Date: 20240819
  Receipt Date: 20240827
  Transmission Date: 20241016
  Serious: Yes (Death, Other)
  Sender: CSL BEHRING
  Company Number: None

PATIENT
  Age: 67 Year
  Sex: Male

DRUGS (11)
  1. ALBUREX [Suspect]
     Active Substance: ALBUMIN HUMAN
     Indication: Paracentesis
     Dosage: 3 X 250 ML TRANSFUSIONS OF 5% HAS OVER 2 HOURS
     Route: 065
     Dates: start: 20240702
  2. CALCIUM CARBONATE\CHOLECALCIFEROL [Concomitant]
     Active Substance: CALCIUM CARBONATE\CHOLECALCIFEROL
  3. ALENDRONIC ACID [Concomitant]
     Active Substance: ALENDRONIC ACID
  4. FAMOTIDINE [Concomitant]
     Active Substance: FAMOTIDINE
  5. LACTULOSE [Concomitant]
     Active Substance: LACTULOSE
  6. LEVETIRACETAM [Concomitant]
     Active Substance: LEVETIRACETAM
  7. MONTELUKAST [Concomitant]
     Active Substance: MONTELUKAST SODIUM
  8. VITAMINS [Concomitant]
     Active Substance: VITAMINS
  9. ACETAMINOPHEN [Concomitant]
     Active Substance: ACETAMINOPHEN
  10. ALBUTEROL [Concomitant]
     Active Substance: ALBUTEROL
  11. SPIRONOLACTONE [Concomitant]
     Active Substance: SPIRONOLACTONE

REACTIONS (4)
  - Respiratory distress [Fatal]
  - Hypervolaemia [Fatal]
  - Incorrect dose administered [Unknown]
  - Product dispensing error [Unknown]

NARRATIVE: CASE EVENT DATE: 20240702
